FAERS Safety Report 13553972 (Version 1)
Quarter: 2017Q2

REPORT INFORMATION
  Report Type: Spontaneous
  Country: FR (occurrence: FR)
  Receive Date: 20170517
  Receipt Date: 20170517
  Transmission Date: 20170830
  Serious: Yes (Hospitalization, Other)
  Sender: FDA-Public Use
  Company Number: FR-GLAXOSMITHKLINE-FR2017GSK070543

PATIENT
  Age: 9 Month
  Sex: Male
  Weight: 9.8 kg

DRUGS (5)
  1. FLIXOTIDE [Concomitant]
     Active Substance: FLUTICASONE PROPIONATE
     Indication: PAINFUL RESPIRATION
     Dosage: UNK
     Dates: start: 20170421
  2. AUGMENTIN [Suspect]
     Active Substance: AMOXICILLIN\CLAVULANATE POTASSIUM
     Indication: OTITIS MEDIA ACUTE
     Dosage: UNK
     Route: 048
     Dates: start: 20170422, end: 20170424
  3. VENTOLINE [Suspect]
     Active Substance: ALBUTEROL
     Indication: PAINFUL RESPIRATION
     Dosage: 1 PUFF(S), QID
     Route: 055
     Dates: start: 20170421, end: 20170424
  4. FLIXOTIDE [Concomitant]
     Active Substance: FLUTICASONE PROPIONATE
     Indication: COUGH
  5. VENTOLINE [Suspect]
     Active Substance: ALBUTEROL
     Indication: COUGH

REACTIONS (2)
  - Purpura [Not Recovered/Not Resolved]
  - Thrombocytopenia [Not Recovered/Not Resolved]

NARRATIVE: CASE EVENT DATE: 20170425
